FAERS Safety Report 8818938 (Version 1)
Quarter: 2012Q4

REPORT INFORMATION
  Report Type: 
  Country: PR (occurrence: PR)
  Receive Date: 20121001
  Receipt Date: 20121001
  Transmission Date: 20130627
  Serious: Yes (Hospitalization, Other)
  Sender: FDA-Public Use
  Company Number: PR-BAYER-2012-100979

PATIENT
  Sex: Female

DRUGS (4)
  1. BETASERON [Suspect]
  2. AVONEX [Suspect]
  3. REBIF [Suspect]
  4. COPAXONE [Suspect]

REACTIONS (14)
  - Unevaluable event [None]
  - Multiple sclerosis relapse [None]
  - Asthenia [None]
  - Balance disorder [None]
  - Abasia [None]
  - Monoplegia [None]
  - Unevaluable event [None]
  - Tongue discolouration [None]
  - Muscular weakness [None]
  - Headache [None]
  - Drug hypersensitivity [None]
  - Drug hypersensitivity [None]
  - Dyspnoea [None]
  - Drug ineffective [None]
